FAERS Safety Report 13736212 (Version 2)
Quarter: 2017Q3

REPORT INFORMATION
  Report Type: Spontaneous
  Country: BG (occurrence: BG)
  Receive Date: 20170710
  Receipt Date: 20170721
  Transmission Date: 20171127
  Serious: Yes (Other)
  Sender: FDA-Public Use
  Company Number: BG-ELI_LILLY_AND_COMPANY-BG201707001428

PATIENT
  Age: 62 Year
  Sex: Male
  Weight: 101 kg

DRUGS (4)
  1. ERBITUX [Suspect]
     Active Substance: CETUXIMAB
     Indication: COLORECTAL CANCER METASTATIC
     Dosage: 450 MG/M2, UNK
     Route: 042
  2. ALLERGOSAN [Concomitant]
     Indication: PREMEDICATION
     Dosage: 1 DF, UNKNOWN
     Route: 065
     Dates: start: 20170221
  3. DEXAMETHASONE. [Concomitant]
     Active Substance: DEXAMETHASONE
     Indication: PREMEDICATION
     Dosage: 8 MG, UNKNOWN
     Route: 065
     Dates: start: 20170221
  4. ERBITUX [Suspect]
     Active Substance: CETUXIMAB
     Dosage: 500 MG/M2, WEEKLY (1/W)
     Route: 042
     Dates: start: 20170221

REACTIONS (7)
  - Loss of consciousness [Recovered/Resolved]
  - Abdominal pain [Recovered/Resolved]
  - Tremor [Recovered/Resolved]
  - Hypotension [Recovered/Resolved]
  - Bronchospasm [Recovered/Resolved]
  - Hyperhidrosis [Recovered/Resolved]
  - Off label use [Unknown]

NARRATIVE: CASE EVENT DATE: 20170221
